FAERS Safety Report 6694150-7 (Version None)
Quarter: 2010Q2

REPORT INFORMATION
  Report Type: 
  Country: None (occurrence: None)
  Receive Date: 20100423
  Receipt Date: 20100222
  Transmission Date: 20101027
  Serious: No
  Sender: FDA-Public Use
  Company Number: A0813610A

PATIENT
  Sex: Female

DRUGS (1)
  1. FLOVENT [Suspect]
     Route: 055

REACTIONS (4)
  - COUGH [None]
  - FEAR [None]
  - FOREIGN BODY [None]
  - PRODUCT QUALITY ISSUE [None]
